FAERS Safety Report 9587726 (Version 1)
Quarter: 2013Q4

REPORT INFORMATION
  Report Type: Spontaneous
  Country: US (occurrence: US)
  Receive Date: 20131003
  Receipt Date: 20131003
  Transmission Date: 20140711
  Serious: No
  Sender: FDA-Public Use
  Company Number: US-COVIDIEN/TYCO HEALTHCARE/MALLINCKRODT-T201301351

PATIENT
  Age: 56 Year
  Sex: Female

DRUGS (5)
  1. HYDROMORPHONE [Suspect]
     Indication: PRODUCT USED FOR UNKNOWN INDICATION
     Dosage: 1-2 TABS Q6 PRN
     Route: 048
     Dates: start: 20130211
  2. OXYCODONE [Concomitant]
     Dosage: 20 MG
  3. FENTANYL [Concomitant]
     Dosage: 100 MCG/HR Q 72 HOURS
  4. NORCO [Concomitant]
     Dosage: 10/325 MG, 1/2 - 1 TAB BID
  5. HYDROMORPHONE [Concomitant]

REACTIONS (5)
  - Dysgeusia [Unknown]
  - Hypersensitivity [Unknown]
  - Throat irritation [Unknown]
  - Oral discomfort [Unknown]
  - Glossodynia [Unknown]
